FAERS Safety Report 8429939-7 (Version None)
Quarter: 2012Q2

REPORT INFORMATION
  Report Type: 
  Country: None (occurrence: None)
  Receive Date: 20120612
  Receipt Date: 20120608
  Transmission Date: 20120825
  Serious: No
  Sender: FDA-Public Use
  Company Number: US-BAYER-2012-056651

PATIENT
  Age: 27 Year
  Sex: Male

DRUGS (2)
  1. GADAVIST [Suspect]
     Dosage: UNK
     Dates: start: 20120605
  2. GADAVIST [Suspect]
     Dosage: UNK
     Dates: start: 20111221

REACTIONS (1)
  - VOMITING [None]
